FAERS Safety Report 9770115 (Version 2)
Quarter: 2013Q4

REPORT INFORMATION
  Report Type: Spontaneous
  Country: US (occurrence: US)
  Receive Date: 20131218
  Receipt Date: 20131218
  Transmission Date: 20140711
  Serious: No
  Sender: FDA-Public Use
  Company Number: US-VERTEX PHARMACEUTICALS INC-AE-2011-001028

PATIENT
  Age: 47 Year
  Sex: Female
  Weight: 79.91 kg

DRUGS (11)
  1. INCIVEK [Suspect]
     Indication: HEPATITIS C
     Route: 048
     Dates: start: 20110627
  2. PEGASYS [Concomitant]
     Indication: HEPATITIS C
     Route: 058
     Dates: start: 20110627
  3. RIBAVIRIN [Concomitant]
     Indication: HEPATITIS C
     Dates: start: 20110627, end: 20110819
  4. SINGULAIR [Concomitant]
  5. CLARITIN [Concomitant]
  6. CYMBALTA [Concomitant]
  7. PROZAC [Concomitant]
  8. GABAPENTIN [Concomitant]
  9. MS CONTIN [Concomitant]
  10. LORTAB [Concomitant]
  11. ACTIVELLA [Concomitant]

REACTIONS (1)
  - Pruritus generalised [Not Recovered/Not Resolved]
